FAERS Safety Report 8211111-7 (Version None)
Quarter: 2012Q1

REPORT INFORMATION
  Report Type: 
  Country: None (occurrence: None)
  Receive Date: 20120315
  Receipt Date: 20120313
  Transmission Date: 20120608
  Serious: Yes (Death)
  Sender: FDA-Public Use
  Company Number: PHHY2012VE021086

PATIENT
  Sex: Male

DRUGS (2)
  1. EXELON [Suspect]
     Route: 048
  2. EXELON [Suspect]
     Route: 062

REACTIONS (3)
  - RESPIRATORY FAILURE [None]
  - INFECTION [None]
  - MEMORY IMPAIRMENT [None]
